FAERS Safety Report 9110196 (Version 1)
Quarter: 2013Q1

REPORT INFORMATION
  Report Type: Spontaneous
  Country: FR (occurrence: FR)
  Receive Date: 20130222
  Receipt Date: 20130222
  Transmission Date: 20140127
  Serious: Yes (Disabling)
  Sender: FDA-Public Use
  Company Number: FR-ROCHE-1193753

PATIENT
  Age: 54 Year
  Sex: Female

DRUGS (3)
  1. AVASTIN [Suspect]
     Indication: METASTATIC BRONCHIAL CARCINOMA
     Route: 042
     Dates: start: 20121105, end: 20130108
  2. ALIMTA [Suspect]
     Indication: PRODUCT USED FOR UNKNOWN INDICATION
     Route: 065
     Dates: start: 20121105, end: 20130108
  3. CISPLATIN [Suspect]
     Indication: PRODUCT USED FOR UNKNOWN INDICATION
     Route: 065
     Dates: start: 20121105, end: 20130108

REACTIONS (2)
  - Hemiplegia [Recovered/Resolved with Sequelae]
  - Intracardiac thrombus [Recovered/Resolved with Sequelae]
